FAERS Safety Report 25845382 (Version 2)
Quarter: 2025Q4

REPORT INFORMATION
  Report Type: Spontaneous
  Country: US (occurrence: US)
  Receive Date: 20250925
  Receipt Date: 20251006
  Transmission Date: 20260117
  Serious: Yes (Other)
  Sender: SANDOZ
  Company Number: US-SANDOZ-SDZ2025US069097

PATIENT

DRUGS (2)
  1. RECLAST [Suspect]
     Active Substance: ZOLEDRONIC ACID
     Indication: Product used for unknown indication
     Dosage: UNK
     Route: 065
  2. SPIKEVAX [Suspect]
     Active Substance: CX-046684
     Indication: COVID-19 prophylaxis
     Dosage: 1 DF
     Route: 030

REACTIONS (8)
  - Craniofacial fracture [Unknown]
  - Loss of consciousness [Unknown]
  - Syncope [Unknown]
  - Immunisation reaction [Unknown]
  - COVID-19 [Unknown]
  - Cardiac disorder [Unknown]
  - Pyrexia [Unknown]
  - Fatigue [Unknown]
